FAERS Safety Report 6312705-6 (Version None)
Quarter: 2009Q3

REPORT INFORMATION
  Report Type: 
  Country: None (occurrence: None)
  Receive Date: 20090818
  Receipt Date: 20090810
  Transmission Date: 20100115
  Serious: Yes (Hospitalization)
  Sender: FDA-Public Use
  Company Number: GB-ELI_LILLY_AND_COMPANY-GB200906001656

PATIENT
  Sex: Male
  Weight: 131.8 kg

DRUGS (7)
  1. BYETTA [Suspect]
     Indication: TYPE 2 DIABETES MELLITUS
     Dosage: 10 UG, 2/D
     Route: 058
     Dates: start: 20080819, end: 20090416
  2. AMLODIPINE [Concomitant]
     Dosage: 5 D/F, UNKNOWN
     Route: 048
  3. BENDROFLUMETHIAZIDE [Concomitant]
     Dosage: 2.5 D/F, UNKNOWN
     Route: 048
  4. LISINOPRIL [Concomitant]
     Dosage: 20 D/F, UNKNOWN
     Route: 048
  5. ATORVASTATIN CALCIUM [Concomitant]
     Dosage: 40 MG, UNKNOWN
     Route: 048
  6. ROSIGLITAZONE [Concomitant]
     Dosage: 4 MG, 2/D
     Route: 065
  7. METFORMIN [Concomitant]
     Dosage: 1 G, 2/D
     Route: 065

REACTIONS (1)
  - PANCREATITIS [None]
